FAERS Safety Report 10378903 (Version 1)
Quarter: 2014Q3

REPORT INFORMATION
  Report Type: Spontaneous
  Country: US (occurrence: None)
  Receive Date: 20140811
  Receipt Date: 20140811
  Transmission Date: 20150326
  Serious: Yes (Hospitalization, Disabling)
  Sender: FDA-Public Use
  Company Number: None

PATIENT
  Age: 43 Year
  Sex: Female
  Weight: 68.04 kg

DRUGS (1)
  1. CYMBALTA [Suspect]
     Active Substance: DULOXETINE HYDROCHLORIDE
     Indication: DEPRESSION
     Dates: start: 20050801, end: 20070801

REACTIONS (6)
  - Pain [None]
  - Muscle fatigue [None]
  - Burning sensation [None]
  - Tremor [None]
  - Cerebral disorder [None]
  - Rash [None]

NARRATIVE: CASE EVENT DATE: 20050801
